FAERS Safety Report 8879159 (Version 1)
Quarter: 2012Q4

REPORT INFORMATION
  Report Type: Spontaneous
  Country: US (occurrence: None)
  Receive Date: 20121026
  Receipt Date: 20121026
  Transmission Date: 20130627
  Serious: Yes (Hospitalization, Disabling)
  Sender: FDA-Public Use
  Company Number: None

PATIENT
  Age: 22 Year
  Sex: Female
  Weight: 72.58 kg

DRUGS (1)
  1. MIRENA IUD [Suspect]
     Indication: CONTRACEPTION
     Route: 015
     Dates: start: 20100215, end: 20120319

REACTIONS (3)
  - Abdominal pain upper [None]
  - Pain [None]
  - Uterine perforation [None]
